FAERS Safety Report 13725908 (Version 1)
Quarter: 2017Q3

REPORT INFORMATION
  Report Type: Spontaneous
  Country: US (occurrence: US)
  Receive Date: 20170706
  Receipt Date: 20170706
  Transmission Date: 20171127
  Serious: Yes (Life-Threatening, Hospitalization, Disabling, Other)
  Sender: FDA-Public Use
  Company Number: None

PATIENT
  Weight: 55.8 kg

DRUGS (12)
  1. CLONAZEPAM. [Suspect]
     Active Substance: CLONAZEPAM
     Indication: ANXIETY
     Dosage: ?          OTHER STRENGTH:MG;QUANTITY:1 TABLET(S);?
     Route: 048
     Dates: start: 19980708, end: 20150330
  2. ALPHA LIPOIC ACID [Concomitant]
     Active Substance: .ALPHA.-LIPOIC ACID
  3. CLONAZEPAM. [Suspect]
     Active Substance: CLONAZEPAM
     Indication: POST-TRAUMATIC STRESS DISORDER
     Dosage: ?          OTHER STRENGTH:MG;QUANTITY:1 TABLET(S);?
     Route: 048
     Dates: start: 19980708, end: 20150330
  4. VITAMIN A [Concomitant]
     Active Substance: VITAMIN A
  5. LORAZEPAM. [Suspect]
     Active Substance: LORAZEPAM
     Indication: ANXIETY
     Dosage: ?          OTHER STRENGTH:MG;QUANTITY:1 TABLET(S);?
     Route: 048
  6. MAGNESIUM [Concomitant]
     Active Substance: MAGNESIUM
  7. MULTIPLE VITAMIN [Concomitant]
     Active Substance: VITAMINS
  8. LORAZEPAM. [Suspect]
     Active Substance: LORAZEPAM
     Indication: AGITATION
     Dosage: ?          OTHER STRENGTH:MG;QUANTITY:1 TABLET(S);?
     Route: 048
  9. SAMETEROL XINAFOATE/FLUTICASONE PROPPIONATE [Concomitant]
     Active Substance: FLUTICASONE PROPIONATE\SALMETEROL XINAFOATE
  10. NIACIN. [Suspect]
     Active Substance: NIACIN
  11. GRAPE SEED EXTRACT [Concomitant]
     Active Substance: GRAPE SEED EXTRACT
  12. SCHIZANDRA [Concomitant]

REACTIONS (23)
  - Neuralgia [None]
  - Withdrawal syndrome [None]
  - Intrusive thoughts [None]
  - Irritability [None]
  - Memory impairment [None]
  - Insomnia [None]
  - Dizziness [None]
  - Obsessive-compulsive disorder [None]
  - Tardive dyskinesia [None]
  - Hangover [None]
  - Social problem [None]
  - Social avoidant behaviour [None]
  - Suicidal ideation [None]
  - Somnolence [None]
  - Mutism [None]
  - Phobia [None]
  - Hyperacusis [None]
  - Intentional self-injury [None]
  - Respiratory disorder [None]
  - Mood swings [None]
  - Pain [None]
  - Disturbance in attention [None]
  - Psychotic disorder [None]
